FAERS Safety Report 18841815 (Version 1)
Quarter: 2021Q1

REPORT INFORMATION
  Report Type: Spontaneous
  Country: US (occurrence: US)
  Receive Date: 20210204
  Receipt Date: 20210204
  Transmission Date: 20210419
  Serious: No
  Sender: FDA-Public Use
  Company Number: US-ELI_LILLY_AND_COMPANY-US202101012277

PATIENT
  Sex: Female

DRUGS (4)
  1. PROPANOLOL [PROPRANOLOL] [Suspect]
     Active Substance: PROPRANOLOL HYDROCHLORIDE
     Dosage: UNK, DAILY (ONCE A DAY)
     Route: 065
  2. CYMBALTA [Suspect]
     Active Substance: DULOXETINE HYDROCHLORIDE
     Indication: PRODUCT USED FOR UNKNOWN INDICATION
     Dosage: UNK, UNKNOWN
     Route: 065
  3. LYRICA [Concomitant]
     Active Substance: PREGABALIN
     Indication: PRODUCT USED FOR UNKNOWN INDICATION
     Dosage: UNK, UNKNOWN
  4. PROPANOLOL [PROPRANOLOL] [Suspect]
     Active Substance: PROPRANOLOL HYDROCHLORIDE
     Indication: TREMOR
     Dosage: UNK, UNKNOWN
     Route: 065

REACTIONS (4)
  - Neuropathy peripheral [Unknown]
  - Tremor [Unknown]
  - Fatigue [Unknown]
  - Dyskinesia [Unknown]
